FAERS Safety Report 5490695-6 (Version None)
Quarter: 2007Q4

REPORT INFORMATION
  Report Type: 
  Country: None (occurrence: None)
  Receive Date: 20071019
  Receipt Date: 20071018
  Transmission Date: 20080405
  Serious: Yes (Other)
  Sender: FDA-Public Use
  Company Number: A0688451A

PATIENT
  Age: 29 Year
  Sex: Female

DRUGS (1)
  1. NICODERM CQ [Suspect]
     Indication: SMOKING CESSATION THERAPY
     Route: 062
     Dates: start: 20070919, end: 20071017

REACTIONS (3)
  - MALAISE [None]
  - PHARMACEUTICAL PRODUCT COMPLAINT [None]
  - SYNCOPE [None]
